FAERS Safety Report 25218976 (Version 1)
Quarter: 2025Q2

REPORT INFORMATION
  Report Type: Spontaneous
  Country: CN (occurrence: CN)
  Receive Date: 20250421
  Receipt Date: 20250421
  Transmission Date: 20250716
  Serious: Yes (Other)
  Sender: ABBVIE
  Company Number: CN-PFIZER INC-PV202500044444

PATIENT
  Age: 69 Year
  Sex: Male

DRUGS (6)
  1. AVIBACTAM SODIUM [Suspect]
     Active Substance: AVIBACTAM SODIUM
     Indication: Abdominal infection
     Route: 041
     Dates: start: 20250403, end: 20250404
  2. AVIBACTAM SODIUM [Suspect]
     Active Substance: AVIBACTAM SODIUM
     Indication: Abdominal infection
     Dosage: DOSE: 2.5 G, 1X/DAY
     Route: 041
     Dates: start: 20250403, end: 20250403
  3. AVIBACTAM SODIUM [Suspect]
     Active Substance: AVIBACTAM SODIUM
     Indication: Abdominal infection
     Route: 041
     Dates: start: 20250404, end: 20250404
  4. AVIBACTAM SODIUM [Suspect]
     Active Substance: AVIBACTAM SODIUM
     Indication: Abdominal infection
     Dosage: DOSE: 1.25 G, 1X/DAY
     Route: 041
     Dates: start: 20250408, end: 20250408
  5. AVIBACTAM SODIUM [Suspect]
     Active Substance: AVIBACTAM SODIUM
     Indication: Abdominal infection
     Route: 041
     Dates: start: 20250408, end: 20250410
  6. AVIBACTAM SODIUM [Suspect]
     Active Substance: AVIBACTAM SODIUM
     Indication: Abdominal infection
     Dosage: DOSE: 2.5 G, 1X/DAY
     Route: 041
     Dates: start: 20250404, end: 20250404

REACTIONS (2)
  - Delirium [Unknown]
  - Depressed level of consciousness [Unknown]

NARRATIVE: CASE EVENT DATE: 20250407
